FAERS Safety Report 9187203 (Version 1)
Quarter: 2013Q1

REPORT INFORMATION
  Report Type: Spontaneous
  Country: DK (occurrence: DK)
  Receive Date: 20130325
  Receipt Date: 20130325
  Transmission Date: 20140127
  Serious: Yes (Hospitalization, Other)
  Sender: FDA-Public Use
  Company Number: PHHY2013DK024990

PATIENT
  Age: 70 Year
  Sex: Male

DRUGS (12)
  1. ACETYLSALICYLIC ACID [Suspect]
     Dosage: 75 MG DAILY
     Dates: start: 20040216, end: 20130204
  2. RITUXIMAB [Concomitant]
     Indication: CHRONIC LYMPHOCYTIC LEUKAEMIA
     Dosage: 1028 MG (1027 MG ONCE IN 28 DAYS (ON DAY 1))
     Route: 042
     Dates: start: 20120314
  3. RITUXIMAB [Concomitant]
     Dosage: 1027 MG (1027 MG ONCE IN 28 DAYS (ON DAY 1))
     Route: 042
     Dates: start: 20120314
  4. RITUXIMAB [Concomitant]
     Dosage: 1027 MG, UNK
     Dates: start: 20120314
  5. CHLORAMBUCIL [Concomitant]
     Indication: CHRONIC LYMPHOCYTIC LEUKAEMIA
     Dosage: 40 MG (40 MG TWICE IN 28 DAYS (ON DAY 1 AND DAY 15)
     Route: 048
     Dates: start: 20120314
  6. CHLORAMBUCIL [Concomitant]
     Dosage: 40 MG, (40 MG TWICE IN 28 DAYS (ON DAY 1 AND DAY 15))
     Route: 048
     Dates: start: 20010314
  7. SIMVASTATIN [Concomitant]
     Dosage: 40 MG DAILY
     Dates: start: 20040216
  8. TRIMETHOPRIM [Concomitant]
     Dosage: 100 MG, DAILY
     Dates: start: 20130129
  9. TOLTERODINE [Concomitant]
     Dosage: 1.4 MG DAILY
     Dates: start: 20070410
  10. TRAMADOL [Concomitant]
     Dosage: 50 MG DAILY
     Dates: start: 20060201
  11. PARACETAMOL [Concomitant]
     Dosage: 665 MG DAILY
     Dates: start: 20080601
  12. SODIUM PICOSULFATE [Concomitant]
     Dosage: 15 MG, DAILY
     Dates: start: 20021014

REACTIONS (3)
  - Gastric ulcer [Recovered/Resolved]
  - Urinary bladder haemorrhage [Recovered/Resolved]
  - Hypotension [Recovered/Resolved]
